FAERS Safety Report 4290245-6 (Version None)
Quarter: 2004Q1

REPORT INFORMATION
  Report Type: 
  Country: None (occurrence: None)
  Receive Date: 20040209
  Receipt Date: 20040127
  Transmission Date: 20041129
  Serious: Yes (Hospitalization)
  Sender: FDA-Public Use
  Company Number: 2004005888

PATIENT
  Age: 69 Year
  Sex: Female
  Weight: 81.1939 kg

DRUGS (11)
  1. NEURONTIN [Suspect]
     Indication: ILL-DEFINED DISORDER
     Dosage: ORAL
     Route: 048
     Dates: start: 20020819, end: 20030701
  2. KETOROLAC TROMETHAMINE [Concomitant]
  3. ESOMEPRAZOLE (ESOMEPRAZOLE) [Concomitant]
  4. ATORVASTATIN CALCIUM [Concomitant]
  5. METRONIDAZOLE [Concomitant]
  6. LEVOTHYROXINE SODIUM [Concomitant]
  7. INDAPAMIDE [Concomitant]
  8. CODEINE PHOSPHATE AND ACETAMINOPHEN [Concomitant]
  9. ZOLPIDEM TARTRATE [Concomitant]
  10. ULTRACET [Concomitant]
  11. ALPRAZOLAM [Concomitant]

REACTIONS (23)
  - ABDOMINAL TENDERNESS [None]
  - ABNORMAL FAECES [None]
  - ALOPECIA [None]
  - ANXIETY [None]
  - BLOOD PRESSURE SYSTOLIC INCREASED [None]
  - CONSTIPATION [None]
  - DEPRESSION [None]
  - DIVERTICULITIS [None]
  - DRUG TOLERANCE DECREASED [None]
  - DYSURIA [None]
  - EAR PAIN [None]
  - HAEMATURIA [None]
  - INSOMNIA [None]
  - MARKEDLY REDUCED DIETARY INTAKE [None]
  - MIDDLE EAR EFFUSION [None]
  - NAUSEA [None]
  - OSTEOARTHRITIS [None]
  - PROTEIN URINE [None]
  - RECTAL HAEMORRHAGE [None]
  - SINUSITIS [None]
  - TENDERNESS [None]
  - WEIGHT DECREASED [None]
  - WHITE BLOOD CELLS URINE POSITIVE [None]
